FAERS Safety Report 7579470-6 (Version None)
Quarter: 2011Q2

REPORT INFORMATION
  Report Type: 
  Country: None (occurrence: None)
  Receive Date: 20110622
  Receipt Date: 20110609
  Transmission Date: 20111010
  Serious: Yes (Other)
  Sender: FDA-Public Use
  Company Number: NGX_00448_2011

PATIENT
  Age: 83 Year
  Sex: Female
  Weight: 68.9014 kg

DRUGS (9)
  1. LYRICA [Suspect]
     Indication: NEUROPATHY PERIPHERAL
     Dosage: 25 MG QD ORAL, 50 MG OQ ORAL
     Route: 048
     Dates: start: 20110407, end: 20110501
  2. LYRICA [Suspect]
     Indication: NEUROPATHY PERIPHERAL
     Dosage: 25 MG QD ORAL, 50 MG OQ ORAL
     Route: 048
     Dates: start: 20110505
  3. ATENOLOL [Suspect]
     Indication: PRODUCT USED FOR UNKNOWN INDICATION
     Dosage: ORAL
     Route: 048
  4. CYMBALTA [Suspect]
     Indication: NEUROPATHY PERIPHERAL
     Dosage: ORAL
     Route: 048
  5. LIDOCAINE [Suspect]
     Indication: NEUROPATHY PERIPHERAL
     Dosage: PATCH TRANSDERMAL
     Route: 062
  6. DITROPAN [Suspect]
     Indication: PRODUCT USED FOR UNKNOWN INDICATION
  7. QUTENZA [Suspect]
     Indication: NEUROPATHY PERIPHERAL
     Dosage: TOPICAL
     Route: 061
  8. VITAMINS NOS [Concomitant]
  9. TOPROL-XL [Concomitant]

REACTIONS (12)
  - DIZZINESS [None]
  - SOMNOLENCE [None]
  - MYALGIA [None]
  - INSOMNIA [None]
  - ANXIETY [None]
  - ABDOMINAL PAIN UPPER [None]
  - PAIN IN EXTREMITY [None]
  - DRUG INEFFECTIVE [None]
  - CONDITION AGGRAVATED [None]
  - GAIT DISTURBANCE [None]
  - FATIGUE [None]
  - ATAXIA [None]
